FAERS Safety Report 13098910 (Version 2)
Quarter: 2017Q3

REPORT INFORMATION
  Report Type: Spontaneous
  Country: US (occurrence: US)
  Receive Date: 20170109
  Receipt Date: 20170825
  Transmission Date: 20171127
  Serious: Yes (Hospitalization)
  Sender: FDA-Public Use
  Company Number: US-LUNDBECK-DKLU2024798

PATIENT
  Age: 75 Year
  Sex: Male

DRUGS (1)
  1. NORTHERA [Suspect]
     Active Substance: DROXIDOPA
     Indication: PRODUCT USED FOR UNKNOWN INDICATION
     Route: 048
     Dates: start: 20161123

REACTIONS (1)
  - Urinary tract infection [Unknown]

NARRATIVE: CASE EVENT DATE: 201612
